FAERS Safety Report 9345658 (Version 1)
Quarter: 2013Q2

REPORT INFORMATION
  Report Type: Spontaneous
  Country: US (occurrence: US)
  Receive Date: 20130613
  Receipt Date: 20130613
  Transmission Date: 20140414
  Serious: Yes (Other)
  Sender: FDA-Public Use
  Company Number: US-MYLANLABS-2013S1012292

PATIENT
  Age: 48 Year
  Sex: Female
  Weight: 95.26 kg

DRUGS (5)
  1. PRAZOSIN HYDROCHLORIDE [Suspect]
     Indication: POST-TRAUMATIC STRESS DISORDER
     Dates: start: 20130218, end: 20130315
  2. PRAZOSIN HYDROCHLORIDE [Suspect]
     Indication: OFF LABEL USE
     Dates: start: 20130218, end: 20130315
  3. PRAZOSIN HYDROCHLORIDE [Suspect]
     Indication: POST-TRAUMATIC STRESS DISORDER
     Dates: start: 20130315, end: 20130424
  4. PRAZOSIN HYDROCHLORIDE [Suspect]
     Indication: OFF LABEL USE
     Dates: start: 20130315, end: 20130424
  5. LITHIUM [Concomitant]
     Dosage: 400MG IN MORNING AND 350MG IN EVENING

REACTIONS (6)
  - Blindness transient [Not Recovered/Not Resolved]
  - Dizziness [Not Recovered/Not Resolved]
  - Syncope [Not Recovered/Not Resolved]
  - Insomnia [Not Recovered/Not Resolved]
  - Movement disorder [Not Recovered/Not Resolved]
  - Unevaluable event [Not Recovered/Not Resolved]
